FAERS Safety Report 9257855 (Version 2)
Quarter: 2014Q2

REPORT INFORMATION
  Report Type: Report from Study
  Country: US (occurrence: US)
  Receive Date: 20130426
  Receipt Date: 20140513
  Transmission Date: 20141212
  Serious: Yes (Hospitalization, Other)
  Sender: FDA-Public Use
  Company Number: US-SANOFI-AVENTIS-2013SA041764

PATIENT
  Sex: Female

DRUGS (1)
  1. AUBAGIO [Suspect]
     Indication: MULTIPLE SCLEROSIS
     Route: 048
     Dates: start: 20130127

REACTIONS (6)
  - Gallbladder disorder [Unknown]
  - Fluid retention [Recovered/Resolved]
  - Pain in extremity [Unknown]
  - Nausea [Unknown]
  - Drug dose omission [Unknown]
  - Multiple sclerosis relapse [Unknown]
